FAERS Safety Report 4945517-6 (Version None)
Quarter: 2006Q1

REPORT INFORMATION
  Report Type: 
  Country: None (occurrence: None)
  Receive Date: 20060316
  Receipt Date: 20050909
  Transmission Date: 20060701
  Serious: Yes (Hospitalization, Disabling)
  Sender: FDA-Public Use
  Company Number: US-MERCK-0509USA01683

PATIENT
  Age: 53 Year
  Sex: Male
  Weight: 109 kg

DRUGS (8)
  1. VIOXX [Suspect]
     Indication: BACK PAIN
     Route: 048
     Dates: start: 19990720, end: 20030930
  2. LIPITOR [Concomitant]
     Route: 065
     Dates: start: 19960101
  3. SKELAXIN [Concomitant]
     Route: 065
     Dates: start: 19990101
  4. VOLTAREN [Concomitant]
     Route: 065
  5. WELLBUTRIN [Concomitant]
     Route: 065
  6. TOPROL-XL [Concomitant]
     Route: 065
     Dates: start: 20030101
  7. ZOCOR [Concomitant]
     Route: 065
     Dates: start: 19960101
  8. PRAVACHOL [Concomitant]
     Route: 065
     Dates: start: 19960101

REACTIONS (11)
  - ACUTE MYOCARDIAL INFARCTION [None]
  - ANAEMIA POSTOPERATIVE [None]
  - BACK INJURY [None]
  - CORONARY ARTERY DISEASE [None]
  - DEPRESSION [None]
  - HEADACHE [None]
  - HYPERLIPIDAEMIA [None]
  - HYPERTENSION [None]
  - NEOPLASM MALIGNANT [None]
  - PROSTATE CANCER [None]
  - ROAD TRAFFIC ACCIDENT [None]
